FAERS Safety Report 20837733 (Version 1)
Quarter: 2022Q2

REPORT INFORMATION
  Report Type: Spontaneous
  Country: US (occurrence: US)
  Receive Date: 20220517
  Receipt Date: 20220517
  Transmission Date: 20220721
  Serious: No
  Sender: FDA-Public Use
  Company Number: US-BRISTOL-MYERS SQUIBB COMPANY-2022-024912

PATIENT
  Age: 63 Year
  Weight: 83.01 kg

DRUGS (1)
  1. REVLIMID [Suspect]
     Active Substance: LENALIDOMIDE
     Indication: Follicular lymphoma
     Dosage: 21D ON 7D OFF
     Route: 048
     Dates: start: 20220224

REACTIONS (2)
  - Dacryostenosis acquired [Unknown]
  - Eye swelling [Unknown]
